FAERS Safety Report 15916209 (Version 1)
Quarter: 2019Q1

REPORT INFORMATION
  Report Type: Spontaneous
  Country: DE (occurrence: DE)
  Receive Date: 20190204
  Receipt Date: 20190204
  Transmission Date: 20190417
  Serious: Yes (Life-Threatening)
  Sender: FDA-Public Use
  Company Number: PHHY2019DE024334

PATIENT
  Age: 71 Year
  Sex: Male
  Weight: 83 kg

DRUGS (1)
  1. IBU [Suspect]
     Active Substance: IBUPROFEN
     Indication: OSTEOARTHRITIS
     Dosage: 600 MG, TOTAL
     Route: 065
     Dates: start: 201812

REACTIONS (8)
  - Paraesthesia [Recovering/Resolving]
  - Sneezing [Recovering/Resolving]
  - Dizziness [Recovering/Resolving]
  - Cardiovascular disorder [Recovering/Resolving]
  - Speech disorder [Recovering/Resolving]
  - Pruritus [Recovering/Resolving]
  - Visual impairment [Recovering/Resolving]
  - Blood pressure decreased [Recovering/Resolving]

NARRATIVE: CASE EVENT DATE: 20181227
